FAERS Safety Report 6705294-5 (Version None)
Quarter: 2010Q2

REPORT INFORMATION
  Report Type: 
  Country: None (occurrence: None)
  Receive Date: 20100430
  Receipt Date: 20100422
  Transmission Date: 20101027
  Serious: Yes (Other)
  Sender: FDA-Public Use
  Company Number: GB-MERCK-1004GBR00086

PATIENT
  Age: 64 Year
  Sex: Male

DRUGS (13)
  1. PRINIVIL [Suspect]
     Indication: ATRIAL FIBRILLATION
     Route: 048
  2. PRINIVIL [Suspect]
     Indication: HYPERTENSION
     Route: 048
  3. ATENOLOL [Suspect]
     Indication: ATRIAL FIBRILLATION
     Route: 065
  4. ATENOLOL [Suspect]
     Indication: HYPERTENSION
     Route: 065
  5. BENDROFLUMETHIAZIDE [Suspect]
     Indication: ATRIAL FIBRILLATION
     Route: 065
  6. BENDROFLUMETHIAZIDE [Suspect]
     Indication: HYPERTENSION
     Route: 065
  7. ACETAMINOPHEN AND CODEINE PHOSPHATE [Suspect]
     Indication: ARTHRALGIA
     Route: 065
  8. DICLOFENAC [Suspect]
     Indication: ARTHRALGIA
     Route: 065
  9. DOXAZOSIN MESYLATE [Suspect]
     Indication: ATRIAL FIBRILLATION
     Route: 065
  10. DOXAZOSIN MESYLATE [Suspect]
     Indication: HYPERTENSION
     Route: 065
  11. GABAPENTIN [Suspect]
     Indication: NEURALGIA
     Route: 065
  12. MORPHINE [Suspect]
     Indication: ARTHRALGIA
     Route: 065
  13. SPIRONOLACTONE [Suspect]
     Indication: CARDIAC FAILURE
     Route: 065

REACTIONS (6)
  - CARDIAC FAILURE [None]
  - CONSTIPATION [None]
  - DEHYDRATION [None]
  - DRUG INEFFECTIVE [None]
  - LYMPHOEDEMA [None]
  - PLEURAL EFFUSION [None]
